FAERS Safety Report 21244152 (Version 4)
Quarter: 2022Q4

REPORT INFORMATION
  Report Type: Report from Study
  Country: FI (occurrence: None)
  Receive Date: 20220823
  Receipt Date: 20221226
  Transmission Date: 20230113
  Serious: Yes (Death, Hospitalization)
  Sender: FDA-Public Use
  Company Number: FI-ROCHE-3063651

PATIENT
  Age: 76 Year
  Sex: Male
  Weight: 70 kg

DRUGS (49)
  1. RITUXIMAB [Suspect]
     Active Substance: RITUXIMAB
     Indication: Diffuse large B-cell lymphoma
     Dosage: MOST RECENT DOSE OF RITUXIMAB PRIOR TO SAE ONSET 17/MAR/2022?MOST RECENT DOSE OF RITUXIMAB PRIOR TO
     Route: 041
     Dates: start: 20220317
  2. OXALIPLATIN [Suspect]
     Active Substance: OXALIPLATIN
     Indication: Diffuse large B-cell lymphoma
     Dosage: MOST RECENT DOSE OF OXALIPLATIN PRIOR TO SAE ONSET 18/MAR/2022?DATE OF MOST RECENT DOSE OF OXALIPLAT
     Route: 042
     Dates: start: 20220318
  3. GEMCITABINE [Suspect]
     Active Substance: GEMCITABINE
     Indication: Diffuse large B-cell lymphoma
     Dosage: DATE OF MOST RECENT DOSE OF GEMCITABINE PRIOR TO AE ONSET 25/MAY/2022?DATE OF MOST RECENT DOSE OF GE
     Route: 042
     Dates: start: 20220318
  4. DEXAMETHASONE [Concomitant]
     Active Substance: DEXAMETHASONE
     Indication: Prophylaxis
     Route: 048
     Dates: start: 20220317, end: 20220317
  5. DEXAMETHASONE [Concomitant]
     Active Substance: DEXAMETHASONE
     Route: 048
     Dates: start: 20220317, end: 20220317
  6. DEXAMETHASONE [Concomitant]
     Active Substance: DEXAMETHASONE
     Route: 048
     Dates: start: 20220319, end: 20220319
  7. DEXAMETHASONE [Concomitant]
     Active Substance: DEXAMETHASONE
     Route: 048
     Dates: start: 20220318, end: 20220318
  8. DEXAMETHASONE [Concomitant]
     Active Substance: DEXAMETHASONE
     Dosage: 1 TABLET
     Route: 048
     Dates: start: 20220412, end: 20220412
  9. DEXAMETHASONE [Concomitant]
     Active Substance: DEXAMETHASONE
     Route: 048
     Dates: start: 20220413, end: 20220413
  10. DEXAMETHASONE [Concomitant]
     Active Substance: DEXAMETHASONE
     Route: 048
     Dates: start: 20220505, end: 20220505
  11. DEXAMETHASONE [Concomitant]
     Active Substance: DEXAMETHASONE
     Dates: start: 20220506, end: 20220507
  12. PANADOL [Concomitant]
     Active Substance: ACETAMINOPHEN
     Indication: Pyrexia
     Route: 048
     Dates: start: 20220317
  13. PANADOL [Concomitant]
     Active Substance: ACETAMINOPHEN
     Route: 042
     Dates: start: 20220324, end: 20220324
  14. PANADOL [Concomitant]
     Active Substance: ACETAMINOPHEN
     Route: 048
     Dates: start: 20220325, end: 20220331
  15. GRANISETRON [Concomitant]
     Active Substance: GRANISETRON
     Indication: Prophylaxis
     Route: 048
     Dates: start: 20220318, end: 20220318
  16. GRANISETRON [Concomitant]
     Active Substance: GRANISETRON
     Route: 048
     Dates: start: 20220413, end: 20220413
  17. GRANISETRON [Concomitant]
     Active Substance: GRANISETRON
     Route: 048
     Dates: start: 20220505, end: 20220505
  18. PEGFILGRASTIM [Concomitant]
     Active Substance: PEGFILGRASTIM
     Indication: Prophylaxis
     Route: 058
     Dates: start: 20220319, end: 20220319
  19. METOPROLOL [Concomitant]
     Active Substance: METOPROLOL
     Indication: Tachycardia
     Route: 048
     Dates: start: 20220325
  20. METOPROLOL [Concomitant]
     Active Substance: METOPROLOL
     Route: 048
     Dates: start: 20220328
  21. ONDANSETRON [Concomitant]
     Active Substance: ONDANSETRON
     Indication: Nausea
     Route: 030
     Dates: start: 20220324, end: 20220324
  22. POTASSIUM CHLORIDE [Concomitant]
     Active Substance: POTASSIUM CHLORIDE
     Indication: Hypokalaemia
     Route: 042
     Dates: start: 20220325, end: 20220325
  23. METFORMIN HYDROCHLORIDE [Concomitant]
     Active Substance: METFORMIN HYDROCHLORIDE
     Indication: Type 2 diabetes mellitus
     Route: 048
     Dates: start: 20200730
  24. POTASSIUM CHLORIDE [Concomitant]
     Active Substance: POTASSIUM CHLORIDE
     Indication: Hypokalaemia
     Route: 048
     Dates: start: 20210503
  25. FELODIPINE\METOPROLOL SUCCINATE [Concomitant]
     Active Substance: FELODIPINE\METOPROLOL SUCCINATE
     Indication: Hypertension
     Route: 048
     Dates: start: 20131102, end: 20220324
  26. LIPITOR [Concomitant]
     Active Substance: ATORVASTATIN CALCIUM
     Indication: Hypercholesterolaemia
     Route: 048
     Dates: start: 20210407
  27. EZETIMIBE [Concomitant]
     Active Substance: EZETIMIBE
     Indication: Hypercholesterolaemia
     Route: 048
     Dates: start: 20220223
  28. ALLOPURINOL [Concomitant]
     Active Substance: ALLOPURINOL
     Route: 048
     Dates: start: 20220317
  29. FLUTICASONE FUROATE\VILANTEROL TRIFENATATE [Concomitant]
     Active Substance: FLUTICASONE FUROATE\VILANTEROL TRIFENATATE
     Indication: Asthma
     Route: 055
     Dates: start: 20190429
  30. ENOXAPARIN SODIUM [Concomitant]
     Active Substance: ENOXAPARIN SODIUM
     Indication: Atrial fibrillation
     Route: 048
     Dates: start: 20220325, end: 20220405
  31. PRIMPERAN [Concomitant]
     Active Substance: METOCLOPRAMIDE HYDROCHLORIDE
     Indication: Nausea
     Route: 048
     Dates: start: 20220325
  32. ACETAMINOPHEN [Concomitant]
     Active Substance: ACETAMINOPHEN
     Route: 048
     Dates: start: 20220412, end: 20220412
  33. COTRIM [Concomitant]
     Active Substance: SULFAMETHOXAZOLE\TRIMETHOPRIM
     Dosage: 1 TABLET
     Route: 048
     Dates: start: 20220413
  34. INNOHEP [Concomitant]
     Active Substance: TINZAPARIN SODIUM
     Indication: Atrial fibrillation
     Route: 058
     Dates: start: 20220405
  35. PANADOL FORTE [Concomitant]
     Route: 048
     Dates: start: 20220504, end: 20220504
  36. ZIEXTENZO [Concomitant]
     Active Substance: PEGFILGRASTIM-BMEZ
     Route: 048
     Dates: start: 20220506, end: 20220506
  37. DEXAMETHASONE [Concomitant]
     Active Substance: DEXAMETHASONE
     Indication: Prophylaxis
  38. CETIRIZINE HYDROCHLORIDE [Concomitant]
     Active Substance: CETIRIZINE HYDROCHLORIDE
     Dosage: EVERYDAY
     Route: 048
     Dates: start: 20220317, end: 20220317
  39. DIGOXIN MITE [Concomitant]
     Indication: Tachycardia
     Route: 048
     Dates: start: 20220420, end: 20220531
  40. DIGOXIN MITE [Concomitant]
     Dates: start: 20220601, end: 20220601
  41. DIGOXIN MITE [Concomitant]
     Dates: start: 20220602
  42. BISOPROLOL [Concomitant]
     Active Substance: BISOPROLOL
     Indication: Dyspnoea
     Route: 048
     Dates: start: 20220602
  43. ATROVENT [Concomitant]
     Active Substance: IPRATROPIUM BROMIDE
     Indication: Dyspnoea
     Dosage: 1 INHALATION
     Route: 055
     Dates: start: 20220603, end: 20220607
  44. PULMICORT TURBUHALER [Concomitant]
     Active Substance: BUDESONIDE
     Indication: Dyspnoea
     Route: 055
     Dates: start: 20220603, end: 20220607
  45. PREDNISOLONE [Concomitant]
     Active Substance: PREDNISOLONE
     Indication: Dyspnoea
     Route: 048
     Dates: start: 20220603, end: 20220606
  46. PREDNISOLONE [Concomitant]
     Active Substance: PREDNISOLONE
     Route: 048
     Dates: start: 20220607
  47. AMLODIPINE BESYLATE [Concomitant]
     Active Substance: AMLODIPINE BESYLATE
     Indication: Dyspnoea
     Route: 048
     Dates: start: 20220606, end: 20220625
  48. INNOVAIR [Concomitant]
     Active Substance: BECLOMETHASONE DIPROPIONATE\FORMOTEROL
     Indication: Dyspnoea
     Dosage: 2 INHALATION
     Route: 055
     Dates: start: 20220607
  49. VOLTAREN [Concomitant]
     Active Substance: DICLOFENAC SODIUM
     Indication: Arthritis
     Route: 062
     Dates: start: 20220325, end: 20220405

REACTIONS (3)
  - Pneumonia [Recovered/Resolved]
  - Bronchial obstruction [Recovered/Resolved]
  - COVID-19 pneumonia [Fatal]

NARRATIVE: CASE EVENT DATE: 20220324
